FAERS Safety Report 22264258 (Version 2)
Quarter: 2023Q2

REPORT INFORMATION
  Report Type: Report from Study
  Country: US (occurrence: US)
  Receive Date: 20230428
  Receipt Date: 20230525
  Transmission Date: 20230722
  Serious: Yes (Hospitalization, Other)
  Sender: FDA-Public Use
  Company Number: US-GILEAD-2023-0626079

PATIENT
  Sex: Male

DRUGS (3)
  1. AZTREONAM LYSINE [Suspect]
     Active Substance: AZTREONAM LYSINE
     Indication: Pneumonia pseudomonal
     Dosage: INHALE 75 MG VIA ALTERA NEBULIZER THREE TIMES DAILY. 1 MONTH ON AND 1 MONTH OFF, ALTERNATE WITH TOBR
     Route: 055
  2. TRIKAFTA [Concomitant]
     Active Substance: ELEXACAFTOR\IVACAFTOR\TEZACAFTOR
     Dosage: UNK
  3. PULMOZYME [Concomitant]
     Active Substance: DORNASE ALFA
     Dosage: UNK

REACTIONS (2)
  - Dyspnoea [Unknown]
  - Pneumonia [Unknown]
